FAERS Safety Report 9665173 (Version 1)
Quarter: 2013Q4

REPORT INFORMATION
  Report Type: Spontaneous
  Country: US (occurrence: US)
  Receive Date: 20131103
  Receipt Date: 20131103
  Transmission Date: 20140711
  Serious: Yes (Other)
  Sender: FDA-Public Use
  Company Number: US-MYLANLABS-2013S1023814

PATIENT
  Age: 67 Year
  Sex: Male

DRUGS (6)
  1. DABIGATRAN ETEXILATE [Suspect]
     Indication: ANTICOAGULANT THERAPY
     Route: 065
  2. ASPIRIN [Suspect]
     Dosage: 81MG DAILY
     Route: 065
  3. WARFARIN [Suspect]
     Indication: ANTICOAGULANT THERAPY
     Route: 065
  4. SOTALOL [Concomitant]
     Route: 065
  5. OMEPRAZOLE [Concomitant]
     Route: 065
  6. LISINOPRIL [Concomitant]
     Route: 065

REACTIONS (2)
  - Renal failure acute [Recovered/Resolved]
  - Haematuria [Recovered/Resolved]
